FAERS Safety Report 25336376 (Version 1)
Quarter: 2025Q2

REPORT INFORMATION
  Report Type: Report from Study
  Country: PR (occurrence: PR)
  Receive Date: 20250520
  Receipt Date: 20250520
  Transmission Date: 20250717
  Serious: No
  Sender: SANDOZ
  Company Number: PR-SANDOZ-SDZ2025PR032765

PATIENT
  Age: 15 Year
  Sex: Male

DRUGS (2)
  1. OMNITROPE [Suspect]
     Active Substance: SOMATROPIN
     Indication: Hypopituitarism
     Dosage: 2 MG, QD,ONCE DAILY, 6 DAYS A WEEK,OMNITROPE 10 MG/1.5 ML
     Route: 058
     Dates: start: 202502
  2. OMNITROPE [Suspect]
     Active Substance: SOMATROPIN
     Indication: Hypopituitarism
     Dosage: 2 MG, QD,ONCE DAILY, 6 DAYS A WEEK,OMNITROPE 10 MG/1.5 ML
     Route: 058
     Dates: start: 202502

REACTIONS (1)
  - Injection site haemorrhage [Recovered/Resolved]

NARRATIVE: CASE EVENT DATE: 20250513
